FAERS Safety Report 16839510 (Version 1)
Quarter: 2019Q3

REPORT INFORMATION
  Report Type: Spontaneous
  Country: US (occurrence: US)
  Receive Date: 20190923
  Receipt Date: 20190923
  Transmission Date: 20191005
  Serious: No
  Sender: FDA-Public Use
  Company Number: US-BAUSCH-BL-2019-024952

PATIENT
  Sex: Female

DRUGS (1)
  1. LUMIFY [Suspect]
     Active Substance: BRIMONIDINE TARTRATE
     Indication: OCULAR HYPERAEMIA
     Dosage: USING DAILY BUT SOMETIMES 2 TIMES A DAY
     Route: 047

REACTIONS (3)
  - Ocular hyperaemia [Unknown]
  - Therapeutic product effect incomplete [Unknown]
  - Rebound effect [Unknown]
